FAERS Safety Report 23903810 (Version 1)
Quarter: 2024Q2

REPORT INFORMATION
  Report Type: Spontaneous
  Country: US (occurrence: US)
  Receive Date: 20240527
  Receipt Date: 20240527
  Transmission Date: 20240715
  Serious: No
  Sender: FDA-Public Use
  Company Number: US-AUROBINDO-AUR-APL-2024-013222

PATIENT
  Age: 15 Year
  Sex: Female
  Weight: 52.1 kg

DRUGS (2)
  1. FLUOXETINE HYDROCHLORIDE [Suspect]
     Active Substance: FLUOXETINE HYDROCHLORIDE
     Indication: Panic attack
     Dosage: 2 DOSAGE FORM, DAILY
     Route: 065
     Dates: end: 20240310
  2. FLUOXETINE HYDROCHLORIDE [Suspect]
     Active Substance: FLUOXETINE HYDROCHLORIDE
     Indication: Anxiety

REACTIONS (6)
  - Anxiety [Recovering/Resolving]
  - Pain [Recovering/Resolving]
  - Panic attack [Recovered/Resolved]
  - Condition aggravated [Recovering/Resolving]
  - Product substitution issue [Unknown]
  - Drug ineffective [Unknown]
